FAERS Safety Report 5383115-3 (Version None)
Quarter: 2007Q2

REPORT INFORMATION
  Report Type: 
  Country: None (occurrence: None)
  Receive Date: 20070629
  Receipt Date: 20061214
  Transmission Date: 20071010
  Serious: Yes (Hospitalization, Other)
  Sender: FDA-Public Use
  Company Number: US200610004200

PATIENT
  Age: 64 Year
  Sex: Male

DRUGS (6)
  1. HUMULIN 70/30 [Suspect]
     Indication: DIABETES MELLITUS
     Dates: end: 20050101
  2. HUMALOG PEN [Suspect]
     Indication: DIABETES MELLITUS
     Dosage: OTHER
     Route: 050
     Dates: start: 20050101
  3. LANTUS [Concomitant]
  4. VASOTEC [Concomitant]
  5. LIPITOR [Concomitant]
  6. PLAVIX [Concomitant]

REACTIONS (7)
  - BLOOD GLUCOSE INCREASED [None]
  - DISORIENTATION [None]
  - HYPERTENSION [None]
  - HYPOGLYCAEMIA [None]
  - LOSS OF CONSCIOUSNESS [None]
  - ROAD TRAFFIC ACCIDENT [None]
  - SHOCK [None]
